FAERS Safety Report 9290608 (Version 1)
Quarter: 2013Q2

REPORT INFORMATION
  Report Type: Spontaneous
  Country: FR (occurrence: FR)
  Receive Date: 20130515
  Receipt Date: 20130515
  Transmission Date: 20140414
  Serious: Yes (Hospitalization)
  Sender: FDA-Public Use
  Company Number: FR-SANOFI-AVENTIS-2013SA046459

PATIENT
  Age: 84 Year
  Sex: Female

DRUGS (14)
  1. LASILIX [Suspect]
     Indication: HYPERTENSION
     Route: 048
     Dates: end: 20130408
  2. LASILIX [Suspect]
     Indication: HYPERTENSION
     Route: 048
     Dates: start: 20130408
  3. LASILIX [Suspect]
     Indication: HYPERTENSION
     Route: 048
     Dates: end: 20130413
  4. ADENURIC [Concomitant]
     Dosage: STRENGTH: 80 MG
     Route: 065
  5. CARDENSIEL [Concomitant]
     Dosage: STRENGTH: 5 MG
     Route: 065
  6. CRESTOR [Concomitant]
     Dosage: STRENGTH: 5 MG
     Route: 065
  7. DIFFU K [Concomitant]
     Route: 065
  8. GLUCOR [Concomitant]
     Dosage: STRENGTH: 50 MG
     Route: 065
  9. OMACOR [Concomitant]
     Route: 065
  10. SPASFON [Concomitant]
     Route: 065
  11. STILNOX [Concomitant]
     Dosage: STRENGTH: 10 MG
     Route: 065
  12. VELMETIA [Concomitant]
     Dosage: STRENGTH: 50 MG/1000 MG
     Route: 065
  13. COVERSYL [Concomitant]
     Dosage: STRENGTH: 5 MG
     Route: 065
  14. VIT K ANTAGONISTS [Concomitant]
     Route: 065

REACTIONS (2)
  - Hyponatraemia [Recovered/Resolved]
  - Disorientation [Recovered/Resolved]
